FAERS Safety Report 5614455-8 (Version None)
Quarter: 2008Q1

REPORT INFORMATION
  Report Type: 
  Country: None (occurrence: None)
  Receive Date: 20080130
  Receipt Date: 20080118
  Transmission Date: 20080703
  Serious: Yes (Hospitalization)
  Sender: FDA-Public Use
  Company Number: 2008BI001762

PATIENT
  Age: 47 Year
  Sex: Female

DRUGS (1)
  1. TYSABRI [Suspect]
     Indication: MULTIPLE SCLEROSIS
     Dosage: 300 MG;QM;IV
     Route: 042
     Dates: start: 20050105, end: 20071219

REACTIONS (5)
  - ADENOCARCINOMA PANCREAS [None]
  - GALLBLADDER OBSTRUCTION [None]
  - METASTASES TO GASTROINTESTINAL TRACT [None]
  - METASTASES TO LYMPH NODES [None]
  - POST PROCEDURAL HAEMORRHAGE [None]
